FAERS Safety Report 5554002-2 (Version None)
Quarter: 2007Q4

REPORT INFORMATION
  Report Type: 
  Country: None (occurrence: None)
  Receive Date: 20071212
  Receipt Date: 20071212
  Transmission Date: 20080405
  Serious: Yes (Hospitalization)
  Sender: FDA-Public Use
  Company Number: None

PATIENT
  Sex: Female

DRUGS (2)
  1. GEODON [Suspect]
     Dosage: ONE WEEK
  2. CYMBALTA [Suspect]
     Indication: DEPRESSION
     Dosage: 30MG BY MOUTH DAILY, UNKNOWN, BUT LONGER THAN GEODON
     Route: 048

REACTIONS (5)
  - CONFUSIONAL STATE [None]
  - DEPRESSION [None]
  - NERVOUSNESS [None]
  - SEROTONIN SYNDROME [None]
  - TREMOR [None]
